FAERS Safety Report 14049716 (Version 1)
Quarter: 2017Q4

REPORT INFORMATION
  Report Type: Spontaneous
  Country: ZA (occurrence: ZA)
  Receive Date: 20171005
  Receipt Date: 20171005
  Transmission Date: 20180321
  Serious: Yes (Life-Threatening, Other)
  Sender: FDA-Public Use
  Company Number: ZA-TERSERA THERAPEUTICS, LLC-2028929

PATIENT
  Sex: Male

DRUGS (1)
  1. ZOLADEX [Suspect]
     Active Substance: GOSERELIN ACETATE
     Indication: PROSTATE CANCER
     Route: 058

REACTIONS (19)
  - Fatigue [Unknown]
  - Abdominal pain [Unknown]
  - Peripheral swelling [Unknown]
  - Hypophagia [Unknown]
  - Dysuria [Unknown]
  - Abdominal pain upper [Unknown]
  - Fluid retention [Not Recovered/Not Resolved]
  - General physical health deterioration [Unknown]
  - Vomiting [Unknown]
  - Dizziness [Unknown]
  - Pleural effusion [Unknown]
  - Back pain [Unknown]
  - Intra-abdominal fluid collection [Unknown]
  - Headache [Unknown]
  - Nausea [Unknown]
  - Blood urine present [Unknown]
  - Renal pain [Unknown]
  - Asthenia [Unknown]
  - Protein urine [Unknown]
